FAERS Safety Report 22400440 (Version 1)
Quarter: 2023Q2

REPORT INFORMATION
  Report Type: Spontaneous
  Country: BR (occurrence: BR)
  Receive Date: 20230602
  Receipt Date: 20230602
  Transmission Date: 20230721
  Serious: Yes (Hospitalization, Other)
  Sender: FDA-Public Use
  Company Number: BR-SA-SAC20230531000067

PATIENT

DRUGS (1)
  1. LARONIDASE [Suspect]
     Active Substance: LARONIDASE
     Indication: Mucopolysaccharidosis I
     Dosage: 16 DF, Q15D
     Route: 042

REACTIONS (8)
  - Infection [Unknown]
  - Bronchiectasis [Unknown]
  - Illness [Unknown]
  - Weight decreased [Unknown]
  - Mental disorder [Unknown]
  - Respiratory disorder [Unknown]
  - Allergic respiratory disease [Unknown]
  - Inappropriate schedule of product administration [Unknown]
